FAERS Safety Report 23150820 (Version 4)
Quarter: 2024Q4

REPORT INFORMATION
  Report Type: Report from Study
  Country: DE (occurrence: DE)
  Receive Date: 20231106
  Receipt Date: 20241204
  Transmission Date: 20250115
  Serious: Yes (Hospitalization, Other)
  Sender: NOVARTIS
  Company Number: DE-002147023-NVSC2023DE232452

PATIENT
  Age: 55 Year
  Sex: Female
  Weight: 77 kg

DRUGS (10)
  1. COSENTYX [Suspect]
     Active Substance: SECUKINUMAB
     Indication: Psoriasis
     Dosage: 300 MG, QMO
     Route: 065
     Dates: start: 20170120
  2. COSENTYX [Suspect]
     Active Substance: SECUKINUMAB
     Indication: Spondyloarthropathy
  3. METHOTREXATE SODIUM [Suspect]
     Active Substance: METHOTREXATE SODIUM
     Indication: Psoriasis
     Dosage: 15 MG, QW (ON FRIDAYS)
     Route: 058
     Dates: start: 20151216
  4. ALBUTEROL [Suspect]
     Active Substance: ALBUTEROL
     Indication: Product used for unknown indication
     Dosage: UNK, PRN
     Route: 065
  5. FLUTICASONE PROPIONATE\SALMETEROL XINAFOATE [Suspect]
     Active Substance: FLUTICASONE PROPIONATE\SALMETEROL XINAFOATE
     Indication: Cerebrovascular accident
     Dosage: UNK, BID (50/500)
     Route: 065
  6. FOLIC ACID [Concomitant]
     Active Substance: FOLIC ACID
     Indication: Product used for unknown indication
     Dosage: 5 MG (ON SATURDAYS)
     Route: 065
  7. PALEXIA [Concomitant]
     Active Substance: TAPENTADOL HYDROCHLORIDE
     Indication: Psoriatic arthropathy
     Dosage: 100 MG (1-0-1.5)
     Route: 065
  8. PANTOPRAZOLE [Concomitant]
     Active Substance: PANTOPRAZOLE
     Indication: Product used for unknown indication
     Dosage: 40 MG, QD
     Route: 065
  9. Vigantol [Concomitant]
     Indication: Product used for unknown indication
     Dosage: UNK, QW (1000, ON SUNDAYS)
     Route: 065
  10. MCP [Concomitant]
     Active Substance: METOCLOPRAMIDE HYDROCHLORIDE
     Indication: Product used for unknown indication
     Dosage: UNK, PRN (DROPS)
     Route: 065

REACTIONS (21)
  - Pulmonary embolism [Recovered/Resolved]
  - Dyspnoea exertional [Recovered/Resolved]
  - Palpitations [Recovered/Resolved]
  - General physical health deterioration [Recovered/Resolved]
  - Night sweats [Recovered/Resolved]
  - Chest discomfort [Recovered/Resolved]
  - Arrhythmia [Unknown]
  - Pneumonia [Recovering/Resolving]
  - Chills [Recovering/Resolving]
  - Headache [Recovering/Resolving]
  - Pyrexia [Recovering/Resolving]
  - Tricuspid valve incompetence [Unknown]
  - Restrictive pulmonary disease [Unknown]
  - Pulmonary mass [Unknown]
  - Herpes zoster [Unknown]
  - Productive cough [Not Recovered/Not Resolved]
  - Respiratory tract infection [Unknown]
  - Dysphonia [Unknown]
  - Abdominal pain [Recovered/Resolved]
  - Nausea [Not Recovered/Not Resolved]
  - Bronchitis [Not Recovered/Not Resolved]

NARRATIVE: CASE EVENT DATE: 20190901
